FAERS Safety Report 15116900 (Version 2)
Quarter: 2018Q3

REPORT INFORMATION
  Report Type: Report from Study
  Country: CA (occurrence: CA)
  Receive Date: 20180706
  Receipt Date: 20180719
  Transmission Date: 20181010
  Serious: Yes (Hospitalization, Other)
  Sender: FDA-Public Use
  Company Number: CA-AMGEN-CANSL2018089231

PATIENT
  Age: 72 Year
  Sex: Female
  Weight: 54.88 kg

DRUGS (1)
  1. PROLIA [Suspect]
     Active Substance: DENOSUMAB
     Indication: OSTEOPOROSIS
     Dosage: UNK
     Route: 065
     Dates: start: 201510, end: 201708

REACTIONS (5)
  - Diverticulitis [Unknown]
  - Bone cancer [Unknown]
  - Osteoarthritis [Unknown]
  - Unevaluable event [Unknown]
  - Abscess oral [Recovered/Resolved]

NARRATIVE: CASE EVENT DATE: 201702
